FAERS Safety Report 6551893-3 (Version None)
Quarter: 2010Q1

REPORT INFORMATION
  Report Type: 
  Country: None (occurrence: None)
  Receive Date: 20100120
  Receipt Date: 20100107
  Transmission Date: 20100710
  Serious: Yes (Life-Threatening, Hospitalization)
  Sender: FDA-Public Use
  Company Number: CIP10000058

PATIENT
  Age: 69 Year
  Sex: Female

DRUGS (9)
  1. NITROFURANTOIN MACROCRYSTALLINE [Suspect]
     Indication: INFECTION
     Dosage: 300 MG DAILY, ORAL
     Route: 048
     Dates: start: 20091116, end: 20091120
  2. ARIXTRA [Suspect]
     Indication: PULMONARY EMBOLISM
     Dosage: 7.5 MG/0.6 ML DAY, SUBCUTANEOUS
     Route: 058
     Dates: start: 20091007, end: 20091119
  3. PREVISCAN (FLUINDIONE) TABLET, 20MG [Suspect]
     Indication: PULMONARY EMBOLISM
     Dosage: 20 MG DAILY, ORAL
     Route: 048
     Dates: start: 20091117, end: 20091120
  4. MOCLAMINE (MOCLOBEMIDE) [Concomitant]
  5. POTASSIUM CHLORIDE [Concomitant]
  6. URBANYL (CLOBAZAM) [Concomitant]
  7. DEPAMIDE (VALPROMIDE) [Concomitant]
  8. LASIX [Concomitant]
  9. PERINDOPRIL ERBUMINE [Concomitant]

REACTIONS (9)
  - BODY TEMPERATURE INCREASED [None]
  - HAEMOGLOBIN DECREASED [None]
  - INFLAMMATION [None]
  - INTERNATIONAL NORMALISED RATIO DECREASED [None]
  - INTRA-ABDOMINAL HAEMATOMA [None]
  - OVERDOSE [None]
  - PAIN [None]
  - SKIN WARM [None]
  - SUBCUTANEOUS HAEMATOMA [None]
